FAERS Safety Report 4714111-4 (Version None)
Quarter: 2005Q3

REPORT INFORMATION
  Report Type: 
  Country: None (occurrence: None)
  Receive Date: 20050714
  Receipt Date: 20050704
  Transmission Date: 20060218
  Serious: Yes (Other)
  Sender: FDA-Public Use
  Company Number: GB-NOVOPROD-245296

PATIENT
  Age: 46 Year
  Sex: Male
  Weight: 80 kg

DRUGS (4)
  1. LEVEMIR [Suspect]
     Indication: ILL-DEFINED DISORDER
     Dosage: 17.5 IU, QD
     Route: 058
     Dates: start: 20050505, end: 20050527
  2. NOVORAPID [Suspect]
     Indication: ILL-DEFINED DISORDER
     Dosage: 5.5 IU, QD
     Route: 058
     Dates: start: 20050505, end: 20050527
  3. DOTHIEPIN HYDROCHLORIDE [Concomitant]
     Dosage: 2 UNK, QD
     Route: 048
  4. CAPTOPRIL [Concomitant]
     Dosage: UNK, UNK
     Route: 048

REACTIONS (4)
  - FATIGUE [None]
  - HEADACHE [None]
  - HYPOGLYCAEMIA UNAWARENESS [None]
  - NAUSEA [None]
